FAERS Safety Report 21346458 (Version 1)
Quarter: 2022Q3

REPORT INFORMATION
  Report Type: Spontaneous
  Country: DE (occurrence: DE)
  Receive Date: 20220917
  Receipt Date: 20220917
  Transmission Date: 20221026
  Serious: Yes (Hospitalization)
  Sender: FDA-Public Use
  Company Number: DE-NOVARTISPH-NVSC2022DE208703

PATIENT
  Age: 92 Year
  Sex: Female
  Weight: 50 kg

DRUGS (2)
  1. METFORMIN [Suspect]
     Active Substance: METFORMIN HYDROCHLORIDE
     Indication: Product used for unknown indication
     Dosage: 500 MG, QD
     Route: 048
  2. INSULIN GLARGINE [Suspect]
     Active Substance: INSULIN GLARGINE
     Indication: Product used for unknown indication
     Dosage: 1 IU (1 IE, 8-0-0-0, FERTIGSPRITZEN )
     Route: 058

REACTIONS (3)
  - Oedema peripheral [Unknown]
  - Hyperglycaemia [Unknown]
  - Medication error [Unknown]
